FAERS Safety Report 4472912-4 (Version None)
Quarter: 2004Q4

REPORT INFORMATION
  Report Type: 
  Country: None (occurrence: None)
  Receive Date: 20041013
  Receipt Date: 20041004
  Transmission Date: 20050328
  Serious: Yes (Hospitalization)
  Sender: FDA-Public Use
  Company Number: US-JNJFOC-20041001376

PATIENT
  Age: 49 Year
  Sex: Female

DRUGS (1)
  1. TOPAMAX [Suspect]
     Route: 049
     Dates: start: 20040924

REACTIONS (4)
  - ANXIETY [None]
  - DIZZINESS [None]
  - NERVOUSNESS [None]
  - PERFORMANCE STATUS DECREASED [None]
